FAERS Safety Report 4875403-1 (Version None)
Quarter: 2006Q1

REPORT INFORMATION
  Report Type: 
  Country: None (occurrence: None)
  Receive Date: 20060105
  Receipt Date: 20051227
  Transmission Date: 20060701
  Serious: Yes (Other)
  Sender: FDA-Public Use
  Company Number: 2006000109

PATIENT
  Age: 72 Year
  Sex: Female

DRUGS (6)
  1. PROCARDIA XL [Suspect]
     Indication: ILL-DEFINED DISORDER
     Dosage: 30 MG (30 MG, QD), ORAL
     Route: 048
  2. PLAVIX [Concomitant]
  3. PROTONIX [Concomitant]
  4. ATENOLOL [Concomitant]
  5. NIASPAN [Concomitant]
  6. FOLIC ACID [Concomitant]

REACTIONS (2)
  - BLOOD PRESSURE INCREASED [None]
  - CARDIAC DISORDER [None]
